FAERS Safety Report 10249366 (Version 1)
Quarter: 2014Q2

REPORT INFORMATION
  Report Type: Report from Study
  Country: DE (occurrence: DE)
  Receive Date: 20140620
  Receipt Date: 20140620
  Transmission Date: 20141212
  Serious: Yes (Other)
  Sender: FDA-Public Use
  Company Number: DE-PFIZER INC-2014163707

PATIENT
  Age: 72 Year
  Sex: Male
  Weight: 64 kg

DRUGS (2)
  1. INLYTA [Suspect]
     Indication: METASTATIC RENAL CELL CARCINOMA
     Dosage: 5 MG, 2X/DAY
     Dates: start: 20140106, end: 20140205
  2. INLYTA [Suspect]
     Dosage: 3 MG, 2X/DAY
     Dates: start: 20140206, end: 20140612

REACTIONS (5)
  - Pancytopenia [Unknown]
  - Nausea [Unknown]
  - Diarrhoea [Unknown]
  - Disease progression [Unknown]
  - Metastatic renal cell carcinoma [Unknown]
